FAERS Safety Report 23782776 (Version 2)
Quarter: 2024Q2

REPORT INFORMATION
  Report Type: Report from Study
  Country: US (occurrence: US)
  Receive Date: 20240425
  Receipt Date: 20240609
  Transmission Date: 20240715
  Serious: No
  Sender: FDA-Public Use
  Company Number: US-AstraZeneca-CH-00607678A

PATIENT
  Age: 37 Year
  Sex: Female

DRUGS (2)
  1. STRENSIQ [Suspect]
     Active Substance: ASFOTASE ALFA
     Indication: Product used for unknown indication
     Dosage: 190 MILLIGRAM, TIW
     Route: 058
     Dates: start: 201703, end: 20240412
  2. TIMOLOL [Suspect]
     Active Substance: TIMOLOL
     Indication: Migraine
     Dosage: 10 MILLIGRAM, BID
     Route: 065

REACTIONS (5)
  - Feeling abnormal [Unknown]
  - Fatigue [Not Recovered/Not Resolved]
  - Migraine [Unknown]
  - Blood pressure decreased [Unknown]
  - Hypersomnia [Unknown]

NARRATIVE: CASE EVENT DATE: 20240415
